FAERS Safety Report 18256489 (Version 1)
Quarter: 2020Q3

REPORT INFORMATION
  Report Type: Spontaneous
  Country: US (occurrence: US)
  Receive Date: 20200910
  Receipt Date: 20200910
  Transmission Date: 20201103
  Serious: No
  Sender: FDA-Public Use
  Company Number: None

PATIENT
  Age: 80 Year
  Sex: Female

DRUGS (1)
  1. AMLODIPINE BESYLATE TABS ? 10MG CIPLA [Suspect]
     Active Substance: AMLODIPINE BESYLATE

REACTIONS (2)
  - Product solubility abnormal [None]
  - Throat irritation [None]

NARRATIVE: CASE EVENT DATE: 20200904
